FAERS Safety Report 8091015-3 (Version None)
Quarter: 2012Q1

REPORT INFORMATION
  Report Type: 
  Country: None (occurrence: None)
  Receive Date: 20120128
  Receipt Date: 20110729
  Transmission Date: 20120608
  Serious: No
  Sender: FDA-Public Use
  Company Number: US-ABBOTT-11P-163-0842997-00

PATIENT
  Sex: Female

DRUGS (4)
  1. HUMIRA [Suspect]
  2. PAXIL [Concomitant]
     Indication: ANXIETY
  3. HUMIRA [Suspect]
     Indication: PSORIASIS
     Dosage: 80MG LOADING DOSE
     Route: 058
     Dates: start: 20110707, end: 20110707
  4. LAMICTAL [Concomitant]
     Indication: CONVULSION

REACTIONS (3)
  - BURNING SENSATION [None]
  - INJECTION SITE PAIN [None]
  - PAIN IN EXTREMITY [None]
